FAERS Safety Report 8928562 (Version 1)
Quarter: 2012Q4

REPORT INFORMATION
  Report Type: Spontaneous
  Country: US (occurrence: None)
  Receive Date: 20121126
  Receipt Date: 20121126
  Transmission Date: 20130627
  Serious: Yes (Death)
  Sender: FDA-Public Use
  Company Number: None

PATIENT
  Age: 35 Year
  Sex: Male
  Weight: 74.84 kg

DRUGS (1)
  1. AMPHETAMINE [Suspect]
     Indication: ADD
     Dosage: one a day po
     Route: 048
     Dates: start: 20111101, end: 20120401

REACTIONS (4)
  - Sudden death [None]
  - Cardiomegaly [None]
  - Myocardial infarction [None]
  - Arrhythmia [None]
